FAERS Safety Report 24122039 (Version 1)
Quarter: 2024Q3

REPORT INFORMATION
  Report Type: Report from Study
  Country: AU (occurrence: AU)
  Receive Date: 20240722
  Receipt Date: 20240722
  Transmission Date: 20241017
  Serious: Yes (Other)
  Sender: DAIICHI
  Company Number: AU-AstraZeneca-2022A334779

PATIENT
  Sex: Female

DRUGS (1)
  1. ENHERTU [Suspect]
     Active Substance: FAM-TRASTUZUMAB DERUXTECAN-NXKI
     Indication: Product used for unknown indication
     Dosage: 2 CYCLES OF TREATMENT, DOSE 5.4 MG/KG
     Route: 042

REACTIONS (3)
  - Hypersensitivity pneumonitis [Unknown]
  - Toxicity to various agents [Unknown]
  - Pneumonia [Unknown]
